FAERS Safety Report 15606862 (Version 1)
Quarter: 2018Q4

REPORT INFORMATION
  Report Type: Spontaneous
  Country: US (occurrence: US)
  Receive Date: 20181112
  Receipt Date: 20181112
  Transmission Date: 20190205
  Serious: No
  Sender: FDA-Public Use
  Company Number: US-GLAXOSMITHKLINE-US2018GSK204660

PATIENT
  Age: 74 Year
  Sex: Male

DRUGS (1)
  1. ACITRETIN CAPSULE [Suspect]
     Active Substance: ACITRETIN
     Indication: PSORIASIS
     Dosage: 17.5 MG, UNK
     Dates: start: 20181011

REACTIONS (1)
  - Pain [Unknown]

NARRATIVE: CASE EVENT DATE: 20181011
